FAERS Safety Report 24128668 (Version 2)
Quarter: 2024Q3

REPORT INFORMATION
  Report Type: Spontaneous
  Country: US (occurrence: US)
  Receive Date: 20240723
  Receipt Date: 20240906
  Transmission Date: 20241017
  Serious: No
  Sender: DOMPE FARMACEUTICI
  Company Number: US-FARMAPROD-202406-2213

PATIENT
  Age: 57 Year
  Sex: Male

DRUGS (13)
  1. OXERVATE [Suspect]
     Active Substance: CENEGERMIN-BKBJ
     Indication: Neurotrophic keratopathy
     Route: 047
     Dates: start: 20240608
  2. OXERVATE [Suspect]
     Active Substance: CENEGERMIN-BKBJ
  3. RESTASIS [Concomitant]
     Active Substance: CYCLOSPORINE
  4. CRESEMBA [Concomitant]
     Active Substance: ISAVUCONAZONIUM SULFATE
  5. JAKAFI [Concomitant]
     Active Substance: RUXOLITINIB
  6. CYCLOSPORINE [Concomitant]
     Active Substance: CYCLOSPORINE
  7. LOTEPREDNOL ETABONATE [Concomitant]
     Active Substance: LOTEPREDNOL ETABONATE
  8. PROTONIX [Concomitant]
     Active Substance: PANTOPRAZOLE SODIUM
  9. BACTRIM [Concomitant]
     Active Substance: SULFAMETHOXAZOLE\TRIMETHOPRIM
     Dosage: 400MG-80MG
  10. VALTREX [Concomitant]
     Active Substance: VALACYCLOVIR HYDROCHLORIDE
  11. HERBALS\TURMERIC [Concomitant]
     Active Substance: HERBALS\TURMERIC
  12. FINASTERIDE [Concomitant]
     Active Substance: FINASTERIDE
  13. VITAMIN D-400 [Concomitant]

REACTIONS (3)
  - Eye pain [Unknown]
  - Eye irritation [Unknown]
  - Product dose omission issue [Unknown]

NARRATIVE: CASE EVENT DATE: 20240609
